FAERS Safety Report 4978433-4 (Version None)
Quarter: 2006Q1

REPORT INFORMATION
  Report Type: 
  Country: None (occurrence: None)
  Receive Date: 20060227
  Receipt Date: 20050218
  Transmission Date: 20060701
  Serious: Yes (Disabling)
  Sender: FDA-Public Use
  Company Number: WAES 0502USA02492

PATIENT
  Age: 67 Year
  Sex: Male

DRUGS (2)
  1. ZOCOR [Suspect]
     Indication: BLOOD CHOLESTEROL INCREASED
     Dosage: 20MG/DAILY/PO
     Route: 048
     Dates: start: 20020101, end: 20040801
  2. LOPRESSOR [Concomitant]

REACTIONS (1)
  - MYALGIA [None]
